FAERS Safety Report 8968155 (Version 2)
Quarter: 2013Q1

REPORT INFORMATION
  Report Type: Spontaneous
  Country: US (occurrence: US)
  Receive Date: 20121218
  Receipt Date: 20130215
  Transmission Date: 20140127
  Serious: Yes (Death, Hospitalization)
  Sender: FDA-Public Use
  Company Number: US-JNJFOC-20121204916

PATIENT
  Age: 21 Year
  Sex: Female
  Weight: 64.01 kg

DRUGS (5)
  1. REMICADE [Suspect]
     Indication: CROHN^S DISEASE
     Route: 042
  2. REMICADE [Suspect]
     Indication: CROHN^S DISEASE
     Route: 042
     Dates: start: 20120106
  3. REMICADE [Suspect]
     Indication: CROHN^S DISEASE
     Dosage: 100 MG OR 5MG/KG
     Route: 042
     Dates: start: 2003
  4. SULFASALAZINE [Concomitant]
     Indication: CROHN^S DISEASE
     Route: 065
  5. IRON [Concomitant]
     Route: 065

REACTIONS (3)
  - Megacolon [Fatal]
  - Influenza like illness [Fatal]
  - Drug ineffective [Unknown]
